FAERS Safety Report 5628031-4 (Version None)
Quarter: 2008Q1

REPORT INFORMATION
  Report Type: 
  Country: None (occurrence: None)
  Receive Date: 20080215
  Receipt Date: 20080207
  Transmission Date: 20080703
  Serious: Yes (Other)
  Sender: FDA-Public Use
  Company Number: US-ELI_LILLY_AND_COMPANY-US200801007010

PATIENT
  Age: 73 Year
  Sex: Female

DRUGS (5)
  1. HUMALOG [Suspect]
  2. HUMALOG [Suspect]
  3. HUMALOG [Suspect]
  4. LANTUS [Concomitant]
  5. CYMBALTA [Concomitant]
     Indication: ANXIETY

REACTIONS (6)
  - BLOOD GLUCOSE INCREASED [None]
  - DIABETIC COMA [None]
  - DIVERTICULITIS [None]
  - GASTRIC DISORDER [None]
  - HYPOGLYCAEMIA [None]
  - LOSS OF CONSCIOUSNESS [None]
